FAERS Safety Report 14607023 (Version 3)
Quarter: 2018Q1

REPORT INFORMATION
  Report Type: Spontaneous
  Country: US (occurrence: US)
  Receive Date: 20180307
  Receipt Date: 20180320
  Transmission Date: 20180509
  Serious: Yes (Other)
  Sender: FDA-Public Use
  Company Number: US-ROCHE-2081118

PATIENT
  Sex: Female
  Weight: 131.21 kg

DRUGS (4)
  1. VALIUM [Suspect]
     Active Substance: DIAZEPAM
     Indication: ANXIETY
  2. VALIUM [Suspect]
     Active Substance: DIAZEPAM
     Indication: PANIC ATTACK
     Route: 065
  3. DIAZEPAM. [Suspect]
     Active Substance: DIAZEPAM
     Indication: PRODUCT USED FOR UNKNOWN INDICATION
     Route: 065
  4. TYLENOL [Concomitant]
     Active Substance: ACETAMINOPHEN

REACTIONS (17)
  - Splenomegaly [Unknown]
  - Thyroid cancer [Unknown]
  - Osteoarthritis [Unknown]
  - Drug ineffective [Unknown]
  - Hepatic steatosis [Unknown]
  - Pain [Unknown]
  - Diabetes mellitus [Unknown]
  - Hepatic cirrhosis [Unknown]
  - Product label issue [Unknown]
  - Ill-defined disorder [Unknown]
  - Intervertebral disc degeneration [Unknown]
  - Suspected counterfeit product [Unknown]
  - Memory impairment [Unknown]
  - Drug hypersensitivity [Not Recovered/Not Resolved]
  - Platelet count decreased [Unknown]
  - Stress [Unknown]
  - Underdose [Unknown]

NARRATIVE: CASE EVENT DATE: 2013
